FAERS Safety Report 7968701-6 (Version None)
Quarter: 2011Q4

REPORT INFORMATION
  Report Type: 
  Country: None (occurrence: None)
  Receive Date: 20111207
  Receipt Date: 20111122
  Transmission Date: 20120403
  Serious: Yes (Other)
  Sender: FDA-Public Use
  Company Number: LEVE20110001

PATIENT
  Age: 20 Year
  Sex: Male

DRUGS (3)
  1. CLONAZEPAM (CLONAZEPAM) (6 MILLIGRAM) (CLONAZEPAM) [Concomitant]
  2. LEVETIRACETAM [Suspect]
     Indication: PARTIAL SEIZURES
     Dosage: 1 IN 12 HR
  3. PHENOBARBITAL (PHENOBARBITAL) (0.2 GRAM) [Suspect]
     Indication: PARTIAL SEIZURES
     Dosage: 1 IN 4 HR, INTRAVENOUS
     Route: 042
     Dates: start: 20070801, end: 20090810

REACTIONS (4)
  - CONDITION AGGRAVATED [None]
  - DRUG INTERACTION [None]
  - ANTICONVULSANT DRUG LEVEL DECREASED [None]
  - PARTIAL SEIZURES [None]
